FAERS Safety Report 22870456 (Version 4)
Quarter: 2024Q1

REPORT INFORMATION
  Report Type: Report from Study
  Country: CR (occurrence: CR)
  Receive Date: 20230827
  Receipt Date: 20240220
  Transmission Date: 20240410
  Serious: Yes (Life-Threatening, Hospitalization, Other)
  Sender: FDA-Public Use
  Company Number: CR-002147023-NVSC2023CR185766

PATIENT
  Age: 74 Year
  Sex: Female

DRUGS (2)
  1. KISQALI [Suspect]
     Active Substance: RIBOCICLIB
     Indication: Breast cancer
     Dosage: 400 MG, QD
     Route: 048
     Dates: start: 20230721
  2. KISQALI [Suspect]
     Active Substance: RIBOCICLIB
     Dosage: 400 MG, QD
     Route: 048
     Dates: start: 202310

REACTIONS (21)
  - Aspiration [Unknown]
  - Herpes ophthalmic [Not Recovered/Not Resolved]
  - Ocular hyperaemia [Unknown]
  - Pruritus [Unknown]
  - Herpes zoster [Not Recovered/Not Resolved]
  - Oral herpes [Not Recovered/Not Resolved]
  - Agitation [Unknown]
  - Hypersensitivity [Unknown]
  - Insomnia [Unknown]
  - Dysgeusia [Unknown]
  - Arthralgia [Unknown]
  - Pain [Unknown]
  - Discomfort [Unknown]
  - Mental disorder [Unknown]
  - Dyspnoea [Unknown]
  - Cough [Unknown]
  - Vomiting [Unknown]
  - Nasopharyngitis [Unknown]
  - Asthenia [Unknown]
  - Decreased appetite [Unknown]
  - Nausea [Unknown]

NARRATIVE: CASE EVENT DATE: 20230801
